FAERS Safety Report 20594265 (Version 1)
Quarter: 2022Q1

REPORT INFORMATION
  Report Type: Spontaneous
  Country: US (occurrence: US)
  Receive Date: 20220315
  Receipt Date: 20220315
  Transmission Date: 20220423
  Serious: Yes (Death, Other)
  Sender: FDA-Public Use
  Company Number: US-SA-SAC20220311001690

PATIENT
  Age: 53 Year
  Sex: Male

DRUGS (1)
  1. ZANTAC [Suspect]
     Active Substance: RANITIDINE HYDROCHLORIDE
     Indication: Dyspepsia
     Dosage: UNK, QD
     Dates: start: 201409, end: 201503

REACTIONS (5)
  - Renal cancer stage III [Fatal]
  - Hepatic cancer stage III [Fatal]
  - Lung carcinoma cell type unspecified stage III [Fatal]
  - Gastric cancer stage III [Fatal]
  - Prostate cancer stage III [Fatal]

NARRATIVE: CASE EVENT DATE: 20140101
